FAERS Safety Report 14204785 (Version 1)
Quarter: 2017Q4

REPORT INFORMATION
  Report Type: Spontaneous
  Country: US (occurrence: US)
  Receive Date: 20171118
  Receipt Date: 20171118
  Transmission Date: 20180321
  Serious: Yes (Hospitalization, Other)
  Sender: FDA-Public Use
  Company Number: None

PATIENT
  Sex: Female
  Weight: 45 kg

DRUGS (14)
  1. PROAIR HFA [Concomitant]
     Active Substance: ALBUTEROL SULFATE
  2. TRFAMOTIDINE (PEPCID) [Concomitant]
  3. METHADONE [Concomitant]
     Active Substance: METHADONE HYDROCHLORIDE
  4. FEXOFENADINE HCL (ALLEGRA) [Concomitant]
  5. WOMEN^S ONE A DAY MULTIPLE VITAMIN [Concomitant]
  6. AZELASTINE HCL [Concomitant]
     Active Substance: AZELASTINE HYDROCHLORIDE
  7. MUPURICUB OINTMENT USP 2% [Concomitant]
  8. CALCIUM 600+D3 [Concomitant]
     Active Substance: CALCIUM CARBONATE\VITAMIN D
  9. PROBIOTIC CAPSULE GENERIC CVS BRAND [Concomitant]
  10. FLLUTICASONE PROPIOATE SPRAY (FLONASE) [Concomitant]
  11. PROLIA [Suspect]
     Active Substance: DENOSUMAB
     Indication: OSTEOPOROSIS
     Route: 030
     Dates: start: 20170606
  12. CYMBALTA [Concomitant]
     Active Substance: DULOXETINE HYDROCHLORIDE
  13. PRILOSEC [Concomitant]
     Active Substance: OMEPRAZOLE MAGNESIUM
  14. TEA TREE OIL. [Concomitant]
     Active Substance: TEA TREE OIL

REACTIONS (5)
  - Cellulitis [None]
  - Muscle spasms [None]
  - Scar [None]
  - Lip blister [None]
  - Arthralgia [None]

NARRATIVE: CASE EVENT DATE: 20170606
